FAERS Safety Report 13211812 (Version 1)
Quarter: 2017Q1

REPORT INFORMATION
  Report Type: Spontaneous
  Country: US (occurrence: US)
  Receive Date: 20170209
  Receipt Date: 20170209
  Transmission Date: 20170428
  Serious: No
  Sender: FDA-Public Use
  Company Number: US-ALLERGAN-1657304US

PATIENT
  Age: 25 Year
  Sex: Female

DRUGS (2)
  1. BOTOX [Suspect]
     Active Substance: ONABOTULINUMTOXINA
     Indication: BRUXISM
     Dosage: 20 UNITS, SINGLE
     Route: 030
     Dates: start: 20160514, end: 20160514
  2. BOTOX [Suspect]
     Active Substance: ONABOTULINUMTOXINA
     Indication: RELAXATION THERAPY
     Dosage: 30 UNITS, SINGLE
     Route: 030
     Dates: start: 20160514, end: 20160514

REACTIONS (5)
  - Drug ineffective for unapproved indication [Unknown]
  - Facial asymmetry [Unknown]
  - Off label use [Unknown]
  - Product preparation error [Unknown]
  - Drug administered at inappropriate site [Unknown]
